FAERS Safety Report 5452761-0 (Version None)
Quarter: 2007Q3

REPORT INFORMATION
  Report Type: 
  Country: None (occurrence: None)
  Receive Date: 20070914
  Receipt Date: 20070905
  Transmission Date: 20080115
  Serious: Yes (Other)
  Sender: FDA-Public Use
  Company Number: JP-SANOFI-SYNTHELABO-F01200500880

PATIENT
  Sex: Male
  Weight: 40 kg

DRUGS (6)
  1. FLUOROURACIL INJ [Concomitant]
     Indication: COLON CANCER
     Dosage: UNK
     Route: 065
     Dates: end: 19991115
  2. ALLOPURINOL [Concomitant]
     Indication: STOMATITIS
     Dosage: 60 ML
     Route: 048
     Dates: start: 20050428
  3. LEUCOVORIN CALCIUM [Suspect]
     Route: 042
     Dates: start: 20050427, end: 20050427
  4. LEUCOVORIN CALCIUM [Suspect]
     Dates: start: 20050608, end: 20050609
  5. FLUOROURACIL INJ [Suspect]
     Dosage: 400 MG/BODY(307.5 MG/M2) BOLUS FOLLOWED BY 2400 MG/BODY(1846.2 MG/M2) IV CONTINUOUS INFUSION DY 1-2
     Route: 042
     Dates: start: 20050427, end: 20050428
  6. OXALIPLATIN [Suspect]
     Indication: COLON CANCER
     Route: 042
     Dates: start: 20050427, end: 20050427

REACTIONS (1)
  - GASTRIC ULCER [None]
